FAERS Safety Report 25217067 (Version 2)
Quarter: 2025Q2

REPORT INFORMATION
  Report Type: Spontaneous
  Country: ZA (occurrence: ZA)
  Receive Date: 20250419
  Receipt Date: 20250519
  Transmission Date: 20250717
  Serious: Yes (Other)
  Sender: HETERO
  Company Number: ZA-AMAROX PHARMA-HET2025ZA01952

PATIENT
  Sex: Female

DRUGS (1)
  1. FINGOLIMOD [Suspect]
     Active Substance: FINGOLIMOD
     Indication: Multiple sclerosis
     Route: 048
     Dates: start: 20240531, end: 20250331

REACTIONS (2)
  - Multiple sclerosis relapse [Recovered/Resolved]
  - Disease progression [Recovered/Resolved]
